FAERS Safety Report 14774006 (Version 6)
Quarter: 2018Q3

REPORT INFORMATION
  Report Type: Report from Study
  Country: SG (occurrence: SG)
  Receive Date: 20180418
  Receipt Date: 20180730
  Transmission Date: 20181010
  Serious: Yes (Hospitalization, Other)
  Sender: FDA-Public Use
  Company Number: SG-ASTELLAS-2018US017964

PATIENT
  Age: 10 Year
  Sex: Male
  Weight: 28 kg

DRUGS (16)
  1. ONDANSETRON [Concomitant]
     Active Substance: ONDANSETRON
     Indication: PRODUCT USED FOR UNKNOWN INDICATION
     Route: 042
     Dates: start: 20180117
  2. FRUSEMIDE                          /00032601/ [Concomitant]
     Active Substance: FUROSEMIDE
     Indication: PRODUCT USED FOR UNKNOWN INDICATION
     Dosage: 20 MG, OTHER (ONCE)
     Route: 042
     Dates: start: 20180119, end: 20180119
  3. MICAFUNGIN [Suspect]
     Active Substance: MICAFUNGIN
     Route: 042
     Dates: start: 20180118, end: 20180123
  4. CEFEPIME [Concomitant]
     Active Substance: CEFEPIME HYDROCHLORIDE
     Route: 042
     Dates: start: 20180123
  5. VANCOMYCIN [Concomitant]
     Active Substance: VANCOMYCIN
     Indication: PRODUCT USED FOR UNKNOWN INDICATION
     Route: 042
     Dates: start: 20180117, end: 20180118
  6. VANCOMYCIN [Concomitant]
     Active Substance: VANCOMYCIN
     Route: 042
     Dates: start: 20180123, end: 20180124
  7. MICAFUNGIN [Suspect]
     Active Substance: MICAFUNGIN
     Indication: EVIDENCE BASED TREATMENT
     Dosage: UNK, UNKNOWN FREQ.
     Route: 065
     Dates: start: 20170724, end: 20170728
  8. FRUSEMIDE                          /00032601/ [Concomitant]
     Active Substance: FUROSEMIDE
     Route: 048
     Dates: start: 20180120, end: 20180121
  9. CEFEPIME [Concomitant]
     Active Substance: CEFEPIME HYDROCHLORIDE
     Indication: PRODUCT USED FOR UNKNOWN INDICATION
     Route: 042
     Dates: start: 20180115, end: 20180119
  10. FRUSEMIDE                          /00032601/ [Concomitant]
     Active Substance: FUROSEMIDE
     Dosage: 20 MG, OTHER (ONCE)
     Route: 048
     Dates: start: 20180120, end: 20180120
  11. KONAKION [Concomitant]
     Active Substance: PHYTONADIONE
     Indication: PRODUCT USED FOR UNKNOWN INDICATION
     Dosage: 9 MG, ONCE DAILY (EVERY MORNING)
     Route: 042
     Dates: start: 20180117, end: 20180119
  12. PARACETAMOL [Concomitant]
     Active Substance: ACETAMINOPHEN
     Indication: PRODUCT USED FOR UNKNOWN INDICATION
     Route: 048
     Dates: start: 20180117, end: 20180119
  13. VANCOMYCIN [Concomitant]
     Active Substance: VANCOMYCIN
     Route: 042
     Dates: start: 20180119, end: 20180123
  14. MEROPENEM. [Concomitant]
     Active Substance: MEROPENEM
     Indication: PRODUCT USED FOR UNKNOWN INDICATION
     Route: 042
     Dates: start: 20180119, end: 20180123
  15. OMEPRAZOLE. [Concomitant]
     Active Substance: OMEPRAZOLE
     Indication: PRODUCT USED FOR UNKNOWN INDICATION
     Dosage: 20 MG, ONCE DAILY (EVERY MORNING)
     Route: 042
     Dates: start: 20180119
  16. PARACETAMOL [Concomitant]
     Active Substance: ACETAMINOPHEN
     Route: 048
     Dates: start: 20180119

REACTIONS (6)
  - Pseudomonal sepsis [Recovered/Resolved]
  - Hypokalaemia [Recovered/Resolved]
  - Blood magnesium decreased [Recovered/Resolved]
  - Stomatitis [Unknown]
  - Staphylococcal infection [Recovered/Resolved]
  - Abscess [Recovered/Resolved]

NARRATIVE: CASE EVENT DATE: 20180120
